FAERS Safety Report 5792541-X (Version None)
Quarter: 2008Q2

REPORT INFORMATION
  Report Type: 
  Country: None (occurrence: None)
  Receive Date: 20080626
  Receipt Date: 20080618
  Transmission Date: 20081010
  Serious: Yes (Other)
  Sender: FDA-Public Use
  Company Number: CA-PFIZER INC-2007104486

PATIENT
  Sex: Male

DRUGS (2)
  1. AZITHROMYCIN [Suspect]
     Indication: PNEUMONIA
     Route: 048
  2. AZITHROMYCIN [Suspect]
     Indication: INFECTION
     Route: 048
     Dates: start: 20071101, end: 20071127

REACTIONS (8)
  - AGITATION [None]
  - ERYTHEMA [None]
  - FLUSHING [None]
  - INSOMNIA [None]
  - MUSCLE SPASMS [None]
  - MUSCULOSKELETAL STIFFNESS [None]
  - MYALGIA [None]
  - SWOLLEN TONGUE [None]
